FAERS Safety Report 5060025-2 (Version None)
Quarter: 2006Q3

REPORT INFORMATION
  Report Type: 
  Country: None (occurrence: None)
  Receive Date: 20060719
  Receipt Date: 20060710
  Transmission Date: 20061208
  Serious: Yes (Hospitalization, Other)
  Sender: FDA-Public Use
  Company Number: 2006AL001720

PATIENT
  Age: 29 Year
  Sex: Female
  Weight: 52.1637 kg

DRUGS (2)
  1. LORAZEPAM [Suspect]
     Indication: INSOMNIA
     Dosage: 2 MG;PRN;PO
     Route: 048
     Dates: start: 20050308, end: 20050313
  2. LEVOTHYROXINE SODIUM [Concomitant]

REACTIONS (7)
  - ACCIDENTAL OVERDOSE [None]
  - AMNESIA [None]
  - ANXIETY [None]
  - CONFUSIONAL STATE [None]
  - DIZZINESS [None]
  - GAIT DISTURBANCE [None]
  - SOMNOLENCE [None]
